FAERS Safety Report 20369649 (Version 3)
Quarter: 2022Q1

REPORT INFORMATION
  Report Type: Spontaneous
  Country: GB (occurrence: GB)
  Receive Date: 20220124
  Receipt Date: 20220228
  Transmission Date: 20220423
  Serious: Yes (Death, Hospitalization, Other)
  Sender: FDA-Public Use
  Company Number: GB-MYLANLABS-2022M1005578

PATIENT
  Sex: Male

DRUGS (1)
  1. CLOZARIL [Suspect]
     Active Substance: CLOZAPINE
     Indication: Schizophrenia
     Dosage: UNK
     Route: 048
     Dates: start: 20030905, end: 20220110

REACTIONS (3)
  - Lower respiratory tract infection [Fatal]
  - Malaise [Unknown]
  - Schizophrenia [Unknown]
